FAERS Safety Report 11202996 (Version 1)
Quarter: 2015Q2

REPORT INFORMATION
  Report Type: Report from Study
  Country: US (occurrence: US)
  Receive Date: 20150619
  Receipt Date: 20150619
  Transmission Date: 20150821
  Serious: Yes (Other)
  Sender: FDA-Public Use
  Company Number: US-ABBVIE-15K-163-1408500-00

PATIENT
  Age: 44 Year
  Sex: Male
  Weight: 96.7 kg

DRUGS (2)
  1. LIALDA [Concomitant]
     Active Substance: MESALAMINE
     Indication: CROHN^S DISEASE
     Dates: start: 201505
  2. HUMIRA [Suspect]
     Active Substance: ADALIMUMAB
     Indication: CROHN^S DISEASE
     Route: 058
     Dates: start: 20150303, end: 20150503

REACTIONS (2)
  - Urticaria [Recovering/Resolving]
  - Allergic oedema [Recovered/Resolved]

NARRATIVE: CASE EVENT DATE: 20150503
